FAERS Safety Report 19405281 (Version 2)
Quarter: 2021Q3

REPORT INFORMATION
  Report Type: Spontaneous
  Country: DE (occurrence: DE)
  Receive Date: 20210611
  Receipt Date: 20210709
  Transmission Date: 20211014
  Serious: Yes (Other)
  Sender: FDA-Public Use
  Company Number: DE-MYLANLABS-2021M1033749

PATIENT
  Sex: Male

DRUGS (1)
  1. EMTRICITABINE,TENOFOVIR DISPROXIL [Suspect]
     Active Substance: EMTRICITABINE\TENOFOVIR DISOPROXIL
     Indication: PRODUCT USED FOR UNKNOWN INDICATION
     Dosage: UNK

REACTIONS (4)
  - Headache [Unknown]
  - Acne [Unknown]
  - Erectile dysfunction [Unknown]
  - Product physical issue [Unknown]
